FAERS Safety Report 8125531-2 (Version None)
Quarter: 2012Q1

REPORT INFORMATION
  Report Type: 
  Country: None (occurrence: None)
  Receive Date: 20120206
  Receipt Date: 20120127
  Transmission Date: 20120608
  Serious: Yes (Life-Threatening)
  Sender: FDA-Public Use
  Company Number: AUR-APL-2012-00690

PATIENT
  Age: 83 Year
  Sex: Female
  Weight: 51 kg

DRUGS (7)
  1. ALENDRONATE SODIUM [Concomitant]
  2. CALCICHEW D3 (LEKOVIT CA) [Concomitant]
  3. LANSOPRAZOLE [Concomitant]
  4. HYDROXYCHLOROQUINE SULFATE [Concomitant]
  5. CITALOPRAM HYDROBROMIDE [Suspect]
     Indication: DEPRESSED MOOD
     Dosage: (20 MG)
     Dates: end: 20120102
  6. LEVOTHYROXINE SODIUM [Concomitant]
  7. PREDNISOLONE [Concomitant]

REACTIONS (4)
  - ELECTROCARDIOGRAM QT PROLONGED [None]
  - PRESYNCOPE [None]
  - UNRESPONSIVE TO STIMULI [None]
  - VENTRICULAR TACHYCARDIA [None]
